FAERS Safety Report 23107137 (Version 2)
Quarter: 2024Q4

REPORT INFORMATION
  Report Type: Spontaneous
  Country: US (occurrence: US)
  Receive Date: 20231026
  Receipt Date: 20241010
  Transmission Date: 20250115
  Serious: No
  Sender: ASCENDIS PHARMA
  Company Number: US-ASCENDIS PHARMA-2023US002547

PATIENT

DRUGS (2)
  1. SKYTROFA [Suspect]
     Active Substance: LONAPEGSOMATROPIN-TCGD
     Indication: Hypopituitarism
     Dosage: 9.1 MILLIGRAM, WEEKLY
     Route: 058
     Dates: start: 20230329
  2. SKYTROFA [Suspect]
     Active Substance: LONAPEGSOMATROPIN-TCGD
     Indication: Product used for unknown indication

REACTIONS (2)
  - Device malfunction [Unknown]
  - Product dose omission issue [Unknown]

NARRATIVE: CASE EVENT DATE: 20230501
